FAERS Safety Report 11650544 (Version 2)
Quarter: 2015Q4

REPORT INFORMATION
  Report Type: Spontaneous
  Country: GB (occurrence: GB)
  Receive Date: 20151021
  Receipt Date: 20151117
  Transmission Date: 20160304
  Serious: Yes (Other)
  Sender: FDA-Public Use
  Company Number: PHHY2015GB135586

PATIENT
  Age: 38 Year
  Sex: Male

DRUGS (1)
  1. GILENYA [Suspect]
     Active Substance: FINGOLIMOD HYDROCHLORIDE
     Indication: RELAPSING-REMITTING MULTIPLE SCLEROSIS
     Dosage: UNK
     Route: 065
     Dates: start: 201211

REACTIONS (4)
  - Skin fibrosis [Unknown]
  - Malignant melanoma [Recovered/Resolved]
  - Dermatitis [Unknown]
  - Skin lesion [Unknown]

NARRATIVE: CASE EVENT DATE: 20150805
